FAERS Safety Report 6735065-5 (Version None)
Quarter: 2010Q2

REPORT INFORMATION
  Report Type: 
  Country: None (occurrence: None)
  Receive Date: 20100521
  Receipt Date: 20100510
  Transmission Date: 20101027
  Serious: Yes (Death)
  Sender: FDA-Public Use
  Company Number: US-JNJFOC-20100504544

PATIENT
  Age: 24 Year
  Sex: Male

DRUGS (4)
  1. ACETAMINOPHEN [Suspect]
  2. ACETAMINOPHEN [Suspect]
     Indication: DRUG USE FOR UNKNOWN INDICATION
  3. SALICYLATES NOS [Suspect]
     Indication: DRUG USE FOR UNKNOWN INDICATION
  4. ETHANOL [Suspect]
     Indication: DRUG USE FOR UNKNOWN INDICATION

REACTIONS (4)
  - ALCOHOL POISONING [None]
  - ASPHYXIA [None]
  - DRUG TOXICITY [None]
  - PULMONARY OEDEMA [None]
